FAERS Safety Report 5808866-5 (Version None)
Quarter: 2008Q3

REPORT INFORMATION
  Report Type: 
  Country: None (occurrence: None)
  Receive Date: 20080714
  Receipt Date: 20080707
  Transmission Date: 20090109
  Serious: Yes (Hospitalization, Other)
  Sender: FDA-Public Use
  Company Number: CO-BAYER-200815690LA

PATIENT
  Age: 48 Year
  Sex: Female

DRUGS (1)
  1. CARDIOASPIRINA [Suspect]
     Indication: ANTICOAGULANT THERAPY
     Route: 048
     Dates: start: 20060101, end: 20080101

REACTIONS (5)
  - APPENDICITIS [None]
  - DYSPNOEA [None]
  - POSTOPERATIVE WOUND COMPLICATION [None]
  - PULMONARY EMBOLISM [None]
  - PYREXIA [None]
